FAERS Safety Report 21765640 (Version 1)
Quarter: 2022Q4

REPORT INFORMATION
  Report Type: Report from Study
  Country: US (occurrence: US)
  Receive Date: 20221222
  Receipt Date: 20221222
  Transmission Date: 20230112
  Serious: Yes (Hospitalization)
  Sender: FDA-Public Use
  Company Number: US-ELI_LILLY_AND_COMPANY-US202212008620

PATIENT
  Age: 64 Year
  Sex: Male
  Weight: 78.005 kg

DRUGS (2)
  1. ABEMACICLIB [Suspect]
     Active Substance: ABEMACICLIB
     Indication: Glioblastoma
     Dosage: 150 MG = 3 EACH, ONCE
     Route: 048
  2. TEMUTERKIB [Suspect]
     Active Substance: TEMUTERKIB
     Indication: Glioblastoma
     Dosage: 200 MG = 2 CAP, ONCE
     Route: 048

REACTIONS (1)
  - Hypotension [Unknown]

NARRATIVE: CASE EVENT DATE: 20221213
